FAERS Safety Report 24812203 (Version 1)
Quarter: 2025Q1

REPORT INFORMATION
  Report Type: Spontaneous
  Country: US (occurrence: US)
  Receive Date: 20250106
  Receipt Date: 20250106
  Transmission Date: 20250408
  Serious: No
  Sender: MERCK
  Company Number: US-009507513-2501USA000572

PATIENT
  Age: 69 Year
  Sex: Male

DRUGS (2)
  1. CUBICIN [Suspect]
     Active Substance: DAPTOMYCIN
     Indication: Staphylococcal infection
  2. CUBICIN [Suspect]
     Active Substance: DAPTOMYCIN
     Indication: Cholecystitis infective

REACTIONS (1)
  - Product use in unapproved indication [Unknown]
